FAERS Safety Report 10618078 (Version 2)
Quarter: 2014Q4

REPORT INFORMATION
  Report Type: Spontaneous
  Country: FI (occurrence: FI)
  Receive Date: 20141202
  Receipt Date: 20141205
  Transmission Date: 20150529
  Serious: Yes (Hospitalization, Other)
  Sender: FDA-Public Use
  Company Number: FI-ROCHE-1497525

PATIENT
  Age: 58 Year
  Sex: Female

DRUGS (3)
  1. FLUDARABINE [Concomitant]
     Active Substance: FLUDARABINE PHOSPHATE
     Indication: CHRONIC LYMPHOCYTIC LEUKAEMIA
     Dosage: 1 TREATMENT CYCLE
     Route: 065
     Dates: start: 201404
  2. CYCLOPHOSPHAMIDE. [Concomitant]
     Active Substance: CYCLOPHOSPHAMIDE
     Indication: CHRONIC LYMPHOCYTIC LEUKAEMIA
     Dosage: 1 TREATMENT CYCLE
     Route: 065
     Dates: start: 201404
  3. RITUXIMAB [Suspect]
     Active Substance: RITUXIMAB
     Indication: CHRONIC LYMPHOCYTIC LEUKAEMIA
     Dosage: 1 TREATMENT CYCLE
     Route: 065
     Dates: start: 201404

REACTIONS (6)
  - Chronic lymphocytic leukaemia recurrent [Not Recovered/Not Resolved]
  - Pyrexia [Not Recovered/Not Resolved]
  - Meningoencephalitis bacterial [Recovered/Resolved]
  - Connective tissue disorder [Unknown]
  - Meningitis tuberculous [Recovered/Resolved]
  - Sjogren^s syndrome [Unknown]

NARRATIVE: CASE EVENT DATE: 201411
